FAERS Safety Report 8947819 (Version 1)
Quarter: 2012Q4

REPORT INFORMATION
  Report Type: Spontaneous
  Country: US (occurrence: None)
  Receive Date: 20121203
  Receipt Date: 20121203
  Transmission Date: 20130627
  Serious: Yes (Life-Threatening, Hospitalization)
  Sender: FDA-Public Use
  Company Number: None

PATIENT
  Age: 36 Year
  Sex: Female

DRUGS (1)
  1. CLONAZEPAM [Suspect]
     Indication: BIPOLAR DISORDER
     Dosage: 60 MG ONCE PO
     Route: 048
     Dates: start: 20120114, end: 20120114

REACTIONS (3)
  - Unresponsive to stimuli [None]
  - Respiratory depression [None]
  - Intentional overdose [None]
